FAERS Safety Report 19469085 (Version 1)
Quarter: 2021Q2

REPORT INFORMATION
  Report Type: Report from Study
  Country: US (occurrence: US)
  Receive Date: 20210628
  Receipt Date: 20210628
  Transmission Date: 20210717
  Serious: Yes (Other)
  Sender: FDA-Public Use
  Company Number: US-BRISTOL-MYERS SQUIBB COMPANY-BMS-2021-058543

PATIENT
  Age: 58 Year
  Sex: Male

DRUGS (1)
  1. DASATINIB. [Suspect]
     Active Substance: DASATINIB
     Indication: PRODUCT USED FOR UNKNOWN INDICATION
     Dosage: 100 MILLIGRAM 1 X DAILY
     Route: 065

REACTIONS (2)
  - Malaise [Unknown]
  - Illness [Unknown]

NARRATIVE: CASE EVENT DATE: 20210615
